FAERS Safety Report 10204067 (Version 4)
Quarter: 2015Q1

REPORT INFORMATION
  Report Type: Report from Study
  Country: US (occurrence: US)
  Receive Date: 20140529
  Receipt Date: 20150123
  Transmission Date: 20150720
  Serious: Yes (Other)
  Sender: FDA-Public Use
  Company Number: PHEH2014US010677

PATIENT
  Age: 60 Year
  Sex: Female
  Weight: 57.6 kg

DRUGS (12)
  1. SEROQUEL [Concomitant]
     Active Substance: QUETIAPINE FUMARATE
     Dosage: 200 MG, UNK
  2. PROVIGIL//CHORIONIC GONADOTROPHIN [Concomitant]
     Dosage: 100 MG, UNK
  3. KLONOPIN [Concomitant]
     Active Substance: CLONAZEPAM
     Dosage: 2 MG, UNK
  4. GILENYA [Suspect]
     Active Substance: FINGOLIMOD HYDROCHLORIDE
     Indication: MULTIPLE SCLEROSIS
     Dosage: 0.5 MG, QD
     Route: 048
     Dates: start: 20110405
  5. REMERON [Concomitant]
     Active Substance: MIRTAZAPINE
     Dosage: 30 MG, UNK
  6. VITAMIN C [Concomitant]
     Active Substance: ASCORBIC ACID
     Dosage: 1000 MG, UNK
  7. NASONEX [Concomitant]
     Active Substance: MOMETASONE FUROATE
  8. CHONDROITIN SULFATE (BOVINE)\GLUCOSAMINE SULFATE [Concomitant]
     Active Substance: CHONDROITIN SULFATE (BOVINE)\GLUCOSAMINE SULFATE
  9. MELATONIN [Concomitant]
     Active Substance: MELATONIN
     Dosage: 1 MG, UNK
  10. FLAXSEED [Concomitant]
     Active Substance: FLAX SEED
  11. GILENYA [Suspect]
     Active Substance: FINGOLIMOD HYDROCHLORIDE
     Dosage: 0.5 MG, QD
     Route: 048
     Dates: end: 20140523
  12. VITAMIN D3 [Concomitant]
     Active Substance: CHOLECALCIFEROL
     Dosage: 1000 U, UNK

REACTIONS (9)
  - Meniscus injury [Unknown]
  - Fatigue [Recovering/Resolving]
  - Epstein-Barr virus associated lymphoproliferative disorder [Recovering/Resolving]
  - Blister [Recovered/Resolved]
  - White blood cell count decreased [Unknown]
  - Lymphocyte count decreased [Unknown]
  - Blood pressure decreased [Unknown]
  - Herpes zoster [Recovered/Resolved]
  - Pain [Recovered/Resolved]

NARRATIVE: CASE EVENT DATE: 20120718
